FAERS Safety Report 8538910-6 (Version None)
Quarter: 2012Q3

REPORT INFORMATION
  Report Type: 
  Country: None (occurrence: None)
  Receive Date: 20120726
  Receipt Date: 20120717
  Transmission Date: 20120928
  Serious: Yes (Other)
  Sender: FDA-Public Use
  Company Number: KE-JNJFOC-20120708949

PATIENT

DRUGS (6)
  1. CYCLOPHOSPHAMIDE [Suspect]
     Indication: CHEMOTHERAPY
     Route: 065
  2. FLUOROURACIL [Suspect]
     Indication: CHEMOTHERAPY
     Route: 065
  3. VINCRISTINE [Suspect]
     Indication: CHEMOTHERAPY
     Route: 065
  4. RITUXIMAB [Suspect]
     Indication: CHEMOTHERAPY
     Route: 065
  5. DOXORUBICIN HYDROCHLORIDE [Suspect]
     Indication: CHEMOTHERAPY
     Route: 042
  6. PREDNISONE [Suspect]
     Indication: CHEMOTHERAPY
     Route: 065

REACTIONS (2)
  - CARDIOTOXICITY [None]
  - NEUROTOXICITY [None]
